FAERS Safety Report 18699054 (Version 1)
Quarter: 2021Q1

REPORT INFORMATION
  Report Type: Spontaneous
  Country: US (occurrence: US)
  Receive Date: 20210105
  Receipt Date: 20210105
  Transmission Date: 20210419
  Serious: No
  Sender: FDA-Public Use
  Company Number: US-009507513-2101USA000029

PATIENT
  Age: 80 Year
  Sex: Female

DRUGS (3)
  1. VYTORIN [Suspect]
     Active Substance: EZETIMIBE\SIMVASTATIN
     Dosage: 10/20 MILLIGRAMS (MG), ALTERNATES THE PILLS ONE DAY, TAKES HALF OF A PILL
     Route: 048
     Dates: start: 202011
  2. VYTORIN [Suspect]
     Active Substance: EZETIMIBE\SIMVASTATIN
     Dosage: 10/20 MILLIGRAMS (MG), ALTERNATES THE PILLS ONE DAY, TAKES HALF OF A PILL
     Route: 048
     Dates: start: 202011
  3. VYTORIN [Suspect]
     Active Substance: EZETIMIBE\SIMVASTATIN
     Indication: BLOOD CHOLESTEROL ABNORMAL
     Dosage: 10/20 MILLIGRAMS (MG), ONE TABLET DAILY, AT NIGHT WITH WATER
     Route: 048

REACTIONS (4)
  - Product use issue [Unknown]
  - Wrong technique in product usage process [Unknown]
  - Intentional product misuse [Unknown]
  - No adverse event [Unknown]

NARRATIVE: CASE EVENT DATE: 202011
